FAERS Safety Report 7360489-5 (Version None)
Quarter: 2011Q1

REPORT INFORMATION
  Report Type: 
  Country: None (occurrence: None)
  Receive Date: 20110318
  Receipt Date: 20110310
  Transmission Date: 20110831
  Serious: Yes (Hospitalization, Other)
  Sender: FDA-Public Use
  Company Number: DE-BRISTOL-MYERS SQUIBB COMPANY-15532187

PATIENT
  Age: 12 Year
  Sex: Male

DRUGS (3)
  1. ENALAPRIL [Concomitant]
     Dosage: APPROX:1.5YEARS
     Route: 048
  2. LEVOTHYROXINE SODIUM [Concomitant]
     Dosage: APPROX 4YEARS
     Route: 048
  3. COUMADIN [Suspect]
     Indication: HYPOPLASTIC RIGHT HEART SYNDROME

REACTIONS (3)
  - CONSTIPATION [None]
  - BACK PAIN [None]
  - COAGULOPATHY [None]
